FAERS Safety Report 4499782-2 (Version None)
Quarter: 2004Q4

REPORT INFORMATION
  Report Type: 
  Country: None (occurrence: None)
  Receive Date: 20041108
  Receipt Date: 20041028
  Transmission Date: 20050328
  Serious: Yes (Hospitalization, Other)
  Sender: FDA-Public Use
  Company Number: 2004-09-0345

PATIENT
  Age: 42 Year
  Sex: Male

DRUGS (7)
  1. CELESTAMINE TAB [Suspect]
     Indication: RASH
     Dosage: ORAL
     Route: 048
     Dates: start: 20020729, end: 20020801
  2. TEGRETOL [Suspect]
     Indication: DEPRESSION
     Dosage: ORAL
     Route: 048
     Dates: start: 20020611, end: 20020801
  3. BETAMETHASONE [Suspect]
     Indication: DRUG HYPERSENSITIVITY
     Dosage: 5 MG
     Dates: start: 20020805
  4. LEXOTAN ORAL [Concomitant]
  5. CONIEL (BENIDIPINE HCL) ORAL [Concomitant]
  6. URINORM ORAL [Concomitant]
  7. STEROIDS (NOS) [Concomitant]

REACTIONS (12)
  - DRUG ERUPTION [None]
  - DRUG HYPERSENSITIVITY [None]
  - EATING DISORDER [None]
  - ERYTHEMA [None]
  - GENERAL PHYSICAL HEALTH DETERIORATION [None]
  - LYMPHADENOPATHY [None]
  - MALAISE [None]
  - NASOPHARYNGITIS [None]
  - PHARYNGOLARYNGEAL PAIN [None]
  - PYREXIA [None]
  - RASH [None]
  - SWELLING FACE [None]
